FAERS Safety Report 5013820-X (Version None)
Quarter: 2006Q2

REPORT INFORMATION
  Report Type: 
  Country: None (occurrence: None)
  Receive Date: 20060526
  Receipt Date: 20060526
  Transmission Date: 20061013
  Serious: Yes (Other)
  Sender: FDA-Public Use
  Company Number: None

PATIENT
  Age: 71 Year
  Sex: Female
  Weight: 68.0396 kg

DRUGS (2)
  1. OMACOR [Suspect]
     Indication: BLOOD CHOLESTEROL INCREASED
     Dosage: 2 GMS   TWICE DAILY  ORALLY
     Route: 048
     Dates: start: 20060501, end: 20060522
  2. PRAVACHOL [Concomitant]

REACTIONS (3)
  - LOCAL SWELLING [None]
  - MUSCULOSKELETAL STIFFNESS [None]
  - TENDERNESS [None]
